APPROVED DRUG PRODUCT: MIDAZOLAM HYDROCHLORIDE (AUTOINJECTOR)
Active Ingredient: MIDAZOLAM HYDROCHLORIDE
Strength: EQ 10MG BASE/0.7ML (EQ 10MG BASE/0.7ML)
Dosage Form/Route: SOLUTION;INTRAMUSCULAR
Application: N216359 | Product #001
Applicant: RAFA LABORATORIES LTD
Approved: Aug 8, 2022 | RLD: Yes | RS: Yes | Type: RX